FAERS Safety Report 21068064 (Version 1)
Quarter: 2022Q3

REPORT INFORMATION
  Report Type: Spontaneous
  Country: AU (occurrence: AU)
  Receive Date: 20220712
  Receipt Date: 20220712
  Transmission Date: 20221027
  Serious: Yes (Other)
  Sender: FDA-Public Use
  Company Number: AU-BAXTER-2022BAX014052

PATIENT

DRUGS (2)
  1. CYCLOPHOSPHAMIDE [Suspect]
     Active Substance: CYCLOPHOSPHAMIDE
     Indication: Anti-melanoma differentiation-associated protein 5 antibody positive
     Dosage: UNK
     Route: 065
  2. CYCLOPHOSPHAMIDE [Suspect]
     Active Substance: CYCLOPHOSPHAMIDE
     Indication: Interstitial lung disease

REACTIONS (3)
  - Disease progression [Unknown]
  - Interstitial lung disease [Unknown]
  - Anti-melanoma differentiation-associated protein 5 antibody positive [Unknown]
